FAERS Safety Report 5942401-6 (Version None)
Quarter: 2008Q4

REPORT INFORMATION
  Report Type: 
  Country: None (occurrence: None)
  Receive Date: 20081105
  Receipt Date: 20081024
  Transmission Date: 20090506
  Serious: Yes (Other)
  Sender: FDA-Public Use
  Company Number: US-PFIZER INC-2008092285

PATIENT
  Sex: Female

DRUGS (1)
  1. CHANTIX [Suspect]

REACTIONS (8)
  - ABNORMAL DREAMS [None]
  - DIZZINESS [None]
  - DYSGEUSIA [None]
  - FALL [None]
  - HEADACHE [None]
  - NAUSEA [None]
  - SOMNAMBULISM [None]
  - WEIGHT DECREASED [None]
